FAERS Safety Report 16988235 (Version 1)
Quarter: 2019Q4

REPORT INFORMATION
  Report Type: Spontaneous
  Country: JP (occurrence: JP)
  Receive Date: 20191104
  Receipt Date: 20191104
  Transmission Date: 20200122
  Serious: Yes (Death, Hospitalization, Other)
  Sender: FDA-Public Use
  Company Number: JP-ACCORD-159611

PATIENT
  Age: 64 Year
  Sex: Male

DRUGS (3)
  1. DEXAMETHASONE. [Suspect]
     Active Substance: DEXAMETHASONE
     Indication: BING-NEEL SYNDROME
     Dosage: TWICE WEEKLY
     Dates: start: 2017
  2. METHOTREXATE. [Suspect]
     Active Substance: METHOTREXATE
     Indication: BING-NEEL SYNDROME
     Dosage: TWICE WEEKLY,80% DOSE OF HIGH-DOSE 800 MG/M2 , I.V.; ON DAY 1
     Route: 037
     Dates: start: 2017
  3. CYTARABINE/CYTARABINE HYDROCHLORIDE/CYTARABINE OCFOSFATE [Suspect]
     Active Substance: CYTARABINE
     Indication: BING-NEEL SYNDROME
     Dosage: TWICE WEEKLY, 80% DOSE OF HIGH-DOSE 2.4 G/M2 /DAY, I.V.; ON DAYS 2 AND 3
     Dates: start: 2017

REACTIONS (5)
  - Pyrexia [Unknown]
  - Febrile neutropenia [Unknown]
  - Confusional state [Unknown]
  - Respiratory failure [Unknown]
  - Pneumonia [Fatal]
